FAERS Safety Report 4536735-X (Version None)
Quarter: 2004Q4

REPORT INFORMATION
  Report Type: 
  Country: None (occurrence: None)
  Receive Date: 20041222
  Receipt Date: 20041222
  Transmission Date: 20050328
  Serious: Yes (Life-Threatening)
  Sender: FDA-Public Use
  Company Number: None

PATIENT
  Age: 13 Year
  Sex: Male
  Weight: 55 kg

DRUGS (8)
  1. CISAPRIDE 7 MG QID [Suspect]
     Indication: GASTROOESOPHAGEAL REFLUX DISEASE
     Dosage: 7 MG QID PO
     Route: 048
  2. CISAPRIDE 7 MG QID [Suspect]
     Indication: INTESTINAL HYPOMOTILITY
     Dosage: 7 MG QID PO
     Route: 048
  3. CAMITINE [Concomitant]
  4. FLONASE [Concomitant]
  5. GLYCERIN SUPP [Concomitant]
  6. MULTI-VITAMINS [Concomitant]
  7. VIT C [Concomitant]
  8. ATIVAN [Concomitant]

REACTIONS (6)
  - CARDIAC ARREST [None]
  - CARDIAC FAILURE [None]
  - MARKEDLY REDUCED DIETARY INTAKE [None]
  - PNEUMONIA [None]
  - RALES [None]
  - SEPSIS [None]
